FAERS Safety Report 6969595 (Version 11)
Quarter: 2013Q2

REPORT INFORMATION
  Report Type: Report from Study
  Country: JP (occurrence: JP)
  Receive Date: 20090415
  Receipt Date: 20130528
  Transmission Date: 20140414
  Serious: Yes (Other)
  Sender: FDA-Public Use
  Company Number: PHHY2009JP12233

PATIENT
  Age: 69 Year
  Sex: Male

DRUGS (14)
  1. AMN107 [Suspect]
     Indication: CHRONIC MYELOID LEUKAEMIA
     Dosage: 800 MG, DAILY
     Route: 048
     Dates: start: 20090317, end: 20090326
  2. AMN107 [Suspect]
     Dosage: 400 MG, DAILY
     Route: 048
     Dates: start: 20100217, end: 20100224
  3. AMN107 [Suspect]
     Dosage: 600 MG, DAILY
     Route: 048
     Dates: start: 20100225, end: 20100317
  4. BASEN [Concomitant]
     Dosage: 0.9 MG
     Route: 048
     Dates: start: 2007
  5. DIOVAN [Concomitant]
     Dosage: 80 MG
     Route: 048
     Dates: start: 20080605
  6. URSO [Concomitant]
     Indication: PROPHYLAXIS
     Dosage: 600 MG
     Route: 048
     Dates: start: 20080826
  7. ARTIST [Concomitant]
     Dosage: 5 MG
     Route: 048
     Dates: start: 20080605
  8. ACTOS [Concomitant]
     Dosage: 15 MG
     Route: 048
     Dates: start: 20081128
  9. LASIX [Concomitant]
     Indication: PROPHYLAXIS
     Dosage: 40 MG
     Route: 048
     Dates: start: 20090413
  10. NIPOLAZIN [Concomitant]
     Indication: PROPHYLAXIS
     Dosage: 6 MG
     Route: 048
     Dates: start: 20080702
  11. GASTROM [Concomitant]
     Indication: PROPHYLAXIS
     Dosage: 3 G
     Route: 048
     Dates: start: 20090419
  12. AMARYL [Concomitant]
     Dosage: 3 MG
     Route: 048
     Dates: start: 20080605
  13. AMARYL [Concomitant]
     Dosage: 4 MG
     Route: 048
  14. AMARYL [Concomitant]
     Dosage: 5 MG
     Route: 048
     Dates: start: 20100318

REACTIONS (12)
  - Tumour lysis syndrome [Recovered/Resolved]
  - Renal disorder [Recovered/Resolved]
  - Blood uric acid abnormal [Unknown]
  - Cardiac failure [Recovered/Resolved]
  - Dyspnoea [Unknown]
  - Atrial fibrillation [Recovered/Resolved]
  - Cardiac disorder [Unknown]
  - Pleural effusion [Recovered/Resolved]
  - Hyperglycaemia [Recovered/Resolved]
  - Platelet count decreased [Not Recovered/Not Resolved]
  - Hepatic function abnormal [Recovered/Resolved]
  - Anaemia [Recovered/Resolved]
